FAERS Safety Report 7296474-1 (Version None)
Quarter: 2011Q1

REPORT INFORMATION
  Report Type: 
  Country: None (occurrence: None)
  Receive Date: 20110216
  Receipt Date: 20110203
  Transmission Date: 20110831
  Serious: Yes (Other)
  Sender: FDA-Public Use
  Company Number: PHHY2011TR12094

PATIENT

DRUGS (4)
  1. CYCLOPHOSPHAMIDE [Suspect]
     Dosage: UNK
  2. TAMOXIFEN [Suspect]
     Dosage: UNK
  3. 5-FLUOROURACIL [Suspect]
     Dosage: UNK
  4. ADRIAMYCIN PFS [Suspect]
     Dosage: UNK

REACTIONS (2)
  - BREAST CANCER [None]
  - BREAST MASS [None]
